FAERS Safety Report 21028939 (Version 5)
Quarter: 2022Q3

REPORT INFORMATION
  Report Type: Spontaneous
  Country: CO (occurrence: CO)
  Receive Date: 20220630
  Receipt Date: 20220912
  Transmission Date: 20221026
  Serious: Yes (Other)
  Sender: FDA-Public Use
  Company Number: CO-BAYER-2022P006175

PATIENT
  Age: 22 Year
  Sex: Male

DRUGS (2)
  1. KOVALTRY [Suspect]
     Active Substance: ANTIHEMOPHILIC FACTOR, HUMAN RECOMBINANT
     Indication: Factor VIII deficiency
     Dosage: 1500 IU, Q3WK
     Route: 042
  2. KOVALTRY [Suspect]
     Active Substance: ANTIHEMOPHILIC FACTOR, HUMAN RECOMBINANT
     Indication: Factor VIII deficiency
     Dosage: 1500 IU, BID
     Route: 042
     Dates: start: 20220531, end: 20220601

REACTIONS (4)
  - Mouth haemorrhage [None]
  - Face oedema [None]
  - Gingival erythema [None]
  - Tooth abscess [Recovered/Resolved]

NARRATIVE: CASE EVENT DATE: 20220531
